FAERS Safety Report 7786429-2 (Version None)
Quarter: 2011Q3

REPORT INFORMATION
  Report Type: 
  Country: None (occurrence: None)
  Receive Date: 20110927
  Receipt Date: 20110920
  Transmission Date: 20111222
  Serious: Yes (Hospitalization, Disabling)
  Sender: FDA-Public Use
  Company Number: 2011SP042363

PATIENT
  Age: 68 Year
  Sex: Male

DRUGS (9)
  1. PANTOPRAZOLE [Concomitant]
  2. ASPIRIN [Concomitant]
  3. AVASTIN [Suspect]
     Indication: METASTATIC RENAL CELL CARCINOMA
     Dosage: 10 MG, QOW, IV
     Route: 042
     Dates: start: 20090801, end: 20110301
  4. BISOPROLOL [Concomitant]
  5. CANDESARTAN CILEXETIL [Concomitant]
  6. SIMVASTATIN [Concomitant]
  7. INTERFERON ALFA [Suspect]
     Indication: METASTATIC RENAL CELL CARCINOMA
     Dosage: 3 MIU, QW, SC
     Route: 058
     Dates: start: 20090801, end: 20110301
  8. GLIBENGLAMIDE [Concomitant]
  9. BERLINSULIN H BASAL [Concomitant]

REACTIONS (3)
  - BLOOD POTASSIUM INCREASED [None]
  - METABOLIC ACIDOSIS [None]
  - BLOOD CREATINE INCREASED [None]
